FAERS Safety Report 6808869-8 (Version None)
Quarter: 2010Q2

REPORT INFORMATION
  Report Type: 
  Country: None (occurrence: None)
  Receive Date: 20100630
  Receipt Date: 20091108
  Transmission Date: 20101027
  Serious: Yes (Hospitalization)
  Sender: FDA-Public Use
  Company Number: US-PFIZER INC-2009274076

PATIENT
  Sex: Male
  Weight: 98 kg

DRUGS (13)
  1. TIKOSYN [Suspect]
     Dosage: 500 UG, 2X/DAY
     Route: 048
     Dates: start: 20090501
  2. PROSCAR [Concomitant]
  3. DIGOXIN [Concomitant]
  4. ISOSORBIDE MONONITRATE [Concomitant]
  5. COUMADIN [Concomitant]
  6. ASPIRINE [Concomitant]
  7. ZOCOR [Concomitant]
  8. VALIUM [Concomitant]
  9. ZOLOFT [Concomitant]
  10. DOXAZOSIN MESILATE [Concomitant]
  11. BECONASE [Concomitant]
  12. FAMOTIDINE [Concomitant]
  13. POLYETHYLENE GLYCOL [Concomitant]

REACTIONS (2)
  - ATRIAL FIBRILLATION [None]
  - PROSTATIC SPECIFIC ANTIGEN INCREASED [None]
